FAERS Safety Report 14444447 (Version 1)
Quarter: 2018Q1

REPORT INFORMATION
  Report Type: Spontaneous
  Country: TR (occurrence: TR)
  Receive Date: 20180125
  Receipt Date: 20180125
  Transmission Date: 20180509
  Serious: Yes (Other)
  Sender: FDA-Public Use
  Company Number: TR-AMGEN-TURSP2018010375

PATIENT
  Age: 37 Year
  Sex: Female

DRUGS (3)
  1. DIKLOFENAK [Concomitant]
     Active Substance: DICLOFENAC SODIUM
     Dosage: UNK
  2. ENBREL [Suspect]
     Active Substance: ETANERCEPT
     Indication: SKIN LESION
     Dosage: 50 MG, WEEKLY
     Route: 058
     Dates: start: 20161226, end: 20171207
  3. INDOMETHACIN. [Concomitant]
     Active Substance: INDOMETHACIN
     Dosage: UNK

REACTIONS (1)
  - Mycosis fungoides [Not Recovered/Not Resolved]

NARRATIVE: CASE EVENT DATE: 201801
